FAERS Safety Report 9557452 (Version 1)
Quarter: 2013Q3

REPORT INFORMATION
  Report Type: Spontaneous
  Country: US (occurrence: US)
  Receive Date: 20130926
  Receipt Date: 20130926
  Transmission Date: 20140515
  Serious: Yes (Death, Hospitalization)
  Sender: FDA-Public Use
  Company Number: US-BAYER-2013-116375

PATIENT
  Age: 40 Year
  Sex: Female
  Weight: 112.93 kg

DRUGS (14)
  1. YAZ [Suspect]
  2. GIANVI [Suspect]
  3. GABAPENTIN [Concomitant]
     Dosage: 200 MG, TID
  4. ATENOLOL [Concomitant]
     Dosage: 25 MG, QD
     Route: 048
  5. MACROBID [Concomitant]
     Dosage: 100 MG, BID
     Route: 048
  6. MELATONIN [Concomitant]
     Dosage: 3 MG, A DAY
     Route: 048
  7. OXYCODONE [Concomitant]
     Dosage: 10 MG, PRN
     Route: 048
  8. DOXYCYCLINE [DOXYCYCLINE] [Concomitant]
     Dosage: 40 MG, UNK
  9. NITROFURANTOIN [Concomitant]
     Dosage: 100 MG, UNK
  10. LEVOTHYROXINE [Concomitant]
     Dosage: 50 MCG
  11. LEVOPHED [Concomitant]
  12. EPINEPHRINE [Concomitant]
  13. DOPAMINE [DOPAMINE] [Concomitant]
  14. VASOPRESSIN [VASOPRESSIN] [Concomitant]

REACTIONS (2)
  - Pulmonary embolism [Fatal]
  - Deep vein thrombosis [Fatal]
